FAERS Safety Report 9408294 (Version 3)
Quarter: 2017Q4

REPORT INFORMATION
  Report Type: Spontaneous
  Country: JP (occurrence: JP)
  Receive Date: 20130718
  Receipt Date: 20171127
  Transmission Date: 20180321
  Serious: Yes (Hospitalization)
  Sender: FDA-Public Use
  Company Number: PHHY2013JP074504

PATIENT
  Age: 1 Month
  Sex: Male

DRUGS (3)
  1. TEGRETOL [Suspect]
     Active Substance: CARBAMAZEPINE
     Indication: EXPOSURE DURING BREAST FEEDING
     Dosage: MATERNAL DOSE 400 MG DAILY
     Route: 063
  2. LAMOTRIGINE. [Suspect]
     Active Substance: LAMOTRIGINE
     Indication: EXPOSURE DURING BREAST FEEDING
     Dosage: 200 MG, QD
     Route: 063
  3. CLOBAZAM [Suspect]
     Active Substance: CLOBAZAM
     Indication: EXPOSURE DURING BREAST FEEDING
     Dosage: 10 MG DAILY
     Route: 063

REACTIONS (5)
  - Weight gain poor [Unknown]
  - Exposure during breast feeding [Recovered/Resolved]
  - Somnolence [Unknown]
  - Poor feeding infant [Recovering/Resolving]
  - Hepatic function abnormal [Unknown]

NARRATIVE: CASE EVENT DATE: 20130301
